FAERS Safety Report 10609308 (Version 2)
Quarter: 2015Q1

REPORT INFORMATION
  Report Type: Report from Study
  Country: US (occurrence: US)
  Receive Date: 20141126
  Receipt Date: 20150126
  Transmission Date: 20150720
  Serious: Yes (Hospitalization)
  Sender: FDA-Public Use
  Company Number: US-BIOGENIDEC-2014BI121310

PATIENT
  Age: 38 Year
  Sex: Female

DRUGS (1)
  1. AVONEX [Suspect]
     Active Substance: INTERFERON BETA-1A
     Indication: MULTIPLE SCLEROSIS
     Route: 030
     Dates: start: 20140117

REACTIONS (9)
  - Drug dose omission [Unknown]
  - Nephrolithiasis [Recovered/Resolved]
  - Vomiting [Unknown]
  - Obstructive uropathy [Unknown]
  - Urosepsis [Unknown]
  - Hypotension [Unknown]
  - Kidney rupture [Recovered/Resolved]
  - Urinary tract infection [Unknown]
  - Multiple sclerosis relapse [Recovered/Resolved]

NARRATIVE: CASE EVENT DATE: 201411
